FAERS Safety Report 8514634-6 (Version None)
Quarter: 2012Q3

REPORT INFORMATION
  Report Type: 
  Country: None (occurrence: None)
  Receive Date: 20120717
  Receipt Date: 20120713
  Transmission Date: 20120928
  Serious: Yes (Other)
  Sender: FDA-Public Use
  Company Number: US-PURDUE-USA-2012-0081948

PATIENT
  Sex: Male

DRUGS (5)
  1. UNISOM                             /00000402/ [Concomitant]
     Indication: SLEEP DISORDER
  2. OXYCONTIN [Suspect]
     Indication: PRODUCT USED FOR UNKNOWN INDICATION
     Dosage: 480 MG, Q12H
  3. VALIUM [Concomitant]
     Indication: PRODUCT USED FOR UNKNOWN INDICATION
  4. ZOLOFT [Concomitant]
     Indication: PRODUCT USED FOR UNKNOWN INDICATION
  5. NEURONTIN [Concomitant]
     Indication: PRODUCT USED FOR UNKNOWN INDICATION

REACTIONS (12)
  - SUBCUTANEOUS ABSCESS [None]
  - NEGATIVE THOUGHTS [None]
  - MENTAL STATUS CHANGES [None]
  - DRUG WITHDRAWAL SYNDROME [None]
  - PAIN [None]
  - INCOHERENT [None]
  - PAROSMIA [None]
  - DYSGEUSIA [None]
  - SUICIDAL IDEATION [None]
  - WEIGHT DECREASED [None]
  - INSOMNIA [None]
  - EATING DISORDER [None]
